FAERS Safety Report 5906579-2 (Version None)
Quarter: 2008Q4

REPORT INFORMATION
  Report Type: 
  Country: None (occurrence: None)
  Receive Date: 20081002
  Receipt Date: 20080929
  Transmission Date: 20090506
  Serious: No
  Sender: FDA-Public Use
  Company Number: US-B.I. PHARMACEUTICALS,INC./RIDGEFIELD-2008-BP-15104BP

PATIENT
  Sex: Female

DRUGS (5)
  1. ATROVENT HFA [Suspect]
     Indication: ASTHMA
     Dosage: 4PUF
     Route: 055
  2. TEKTURNA [Suspect]
     Dates: start: 20080901
  3. ASMANEX TWISTHALER [Concomitant]
     Indication: ASTHMA
  4. NEXOIM [Concomitant]
  5. SINGULAIR [Concomitant]
     Indication: HYPERSENSITIVITY

REACTIONS (2)
  - ALOPECIA [None]
  - FEELING JITTERY [None]
